FAERS Safety Report 8390916-6 (Version None)
Quarter: 2012Q2

REPORT INFORMATION
  Report Type: 
  Country: None (occurrence: None)
  Receive Date: 20120529
  Receipt Date: 20120522
  Transmission Date: 20120825
  Serious: Yes (Other)
  Sender: FDA-Public Use
  Company Number: PHHY2012BR021830

PATIENT

DRUGS (3)
  1. CALCIUM [Concomitant]
  2. VITAMIN D [Concomitant]
  3. ZOLEDRONIC ACID [Suspect]
     Indication: TRAUMATIC FRACTURE
     Dosage: 5 MG, YEARLY
     Route: 042

REACTIONS (2)
  - WRIST FRACTURE [None]
  - VITAMIN D DECREASED [None]
